FAERS Safety Report 4441606-3 (Version None)
Quarter: 2004Q3

REPORT INFORMATION
  Report Type: 
  Country: None (occurrence: None)
  Receive Date: 20040728
  Receipt Date: 20040331
  Transmission Date: 20050211
  Serious: Yes (Hospitalization)
  Sender: FDA-Public Use
  Company Number: USA040360828

PATIENT
  Age: 74 Year
  Sex: Female
  Weight: 82 kg

DRUGS (9)
  1. STRATTERA [Suspect]
     Indication: ATTENTION DEFICIT/HYPERACTIVITY DISORDER
     Dosage: 60 MG
  2. WELLBUTRIN [Concomitant]
  3. RITALIN LA [Concomitant]
  4. PROCARDIA [Concomitant]
  5. LIPITOR [Concomitant]
  6. KLONOPIN [Concomitant]
  7. IBUPROFEN [Concomitant]
  8. NASONEX [Concomitant]
  9. DETROL [Concomitant]

REACTIONS (2)
  - ABDOMINAL DISCOMFORT [None]
  - HAEMORRHAGE [None]
